FAERS Safety Report 5715259-8 (Version None)
Quarter: 2008Q2

REPORT INFORMATION
  Report Type: 
  Country: None (occurrence: None)
  Receive Date: 20080423
  Receipt Date: 20080411
  Transmission Date: 20081010
  Serious: Yes (Death, Hospitalization)
  Sender: FDA-Public Use
  Company Number: CZ-GENENTECH-259646

PATIENT
  Sex: Male
  Weight: 92 kg

DRUGS (6)
  1. MABTHERA [Suspect]
     Indication: CHRONIC LYMPHOCYTIC LEUKAEMIA
     Dosage: 500 MG, Q4H
     Route: 051
     Dates: start: 20080320, end: 20080320
  2. FLUDARA [Suspect]
     Indication: CHRONIC LYMPHOCYTIC LEUKAEMIA
     Dosage: 10 MG, UNK
     Route: 048
     Dates: start: 20080320, end: 20080322
  3. COTRIMOXAZOLE [Concomitant]
     Indication: DRUG USE FOR UNKNOWN INDICATION
  4. ZOVIRAX [Concomitant]
     Indication: DRUG USE FOR UNKNOWN INDICATION
  5. CYCLOPHOSPHAMIDE [Concomitant]
     Indication: DRUG USE FOR UNKNOWN INDICATION
     Dates: start: 20080320, end: 20080322
  6. MILURIT [Concomitant]
     Indication: DRUG USE FOR UNKNOWN INDICATION

REACTIONS (1)
  - ANAEMIA HAEMOLYTIC AUTOIMMUNE [None]
